FAERS Safety Report 19705406 (Version 1)
Quarter: 2021Q3

REPORT INFORMATION
  Report Type: Report from Study
  Country: US (occurrence: US)
  Receive Date: 20210816
  Receipt Date: 20210816
  Transmission Date: 20211014
  Serious: Yes (Hospitalization)
  Sender: FDA-Public Use
  Company Number: US-EISAI MEDICAL RESEARCH-EC-2021-095128

PATIENT
  Age: 56 Year
  Sex: Female

DRUGS (16)
  1. ALFUZOSIN [Concomitant]
     Active Substance: ALFUZOSIN
  2. DILTIAZEM 24HR ER [Concomitant]
  3. MAGNESIUM OXIDE. [Concomitant]
     Active Substance: MAGNESIUM OXIDE
  4. LENVIMA [Suspect]
     Active Substance: LENVATINIB
     Indication: RENAL CANCER METASTATIC
     Route: 048
     Dates: start: 2021, end: 2021
  5. DEXTROAMPHET SACCHARAT, AMPHET ASPARTATE, DEXTROAMPHET SULFATE AND AMPHET SULFAT [Concomitant]
     Active Substance: AMPHETAMINE ASPARTATE\AMPHETAMINE SULFATE\DEXTROAMPHETAMINE SACCHARATE\DEXTROAMPHETAMINE SULFATE
  6. TRESIBA [Concomitant]
     Active Substance: INSULIN DEGLUDEC
  7. FENOFIBRATE. [Concomitant]
     Active Substance: FENOFIBRATE
  8. HYDROMORPHONE [Concomitant]
     Active Substance: HYDROMORPHONE
  9. WARFARIN [Concomitant]
     Active Substance: WARFARIN
  10. ZALEPLON. [Concomitant]
     Active Substance: ZALEPLON
  11. CLOPIDOGREL [Concomitant]
     Active Substance: CLOPIDOGREL BISULFATE
  12. REPATHA [Concomitant]
     Active Substance: EVOLOCUMAB
  13. POTASSIUM [Concomitant]
     Active Substance: POTASSIUM
  14. GABAPENTIN. [Concomitant]
     Active Substance: GABAPENTIN
  15. PRAVASTATIN. [Concomitant]
     Active Substance: PRAVASTATIN
  16. METOPROLOL. [Concomitant]
     Active Substance: METOPROLOL

REACTIONS (2)
  - Stomatitis [Unknown]
  - Weight decreased [Unknown]

NARRATIVE: CASE EVENT DATE: 2021
